FAERS Safety Report 22621763 (Version 1)
Quarter: 2023Q2

REPORT INFORMATION
  Report Type: Spontaneous
  Country: FR (occurrence: FR)
  Receive Date: 20230620
  Receipt Date: 20230620
  Transmission Date: 20230722
  Serious: Yes (Other)
  Sender: FDA-Public Use
  Company Number: FR-ELI_LILLY_AND_COMPANY-FR202306000365

PATIENT
  Age: 54 Year
  Sex: Male

DRUGS (1)
  1. CIALIS [Suspect]
     Active Substance: TADALAFIL
     Indication: Erectile dysfunction
     Dosage: 5 MG, DAILY
     Route: 065
     Dates: start: 2019

REACTIONS (4)
  - Neoplasm [Unknown]
  - Meningioma [Unknown]
  - Tinnitus [Unknown]
  - Ear infection [Unknown]

NARRATIVE: CASE EVENT DATE: 20210101
